FAERS Safety Report 13537751 (Version 1)
Quarter: 2017Q2

REPORT INFORMATION
  Report Type: Spontaneous
  Country: US (occurrence: US)
  Receive Date: 20170511
  Receipt Date: 20170511
  Transmission Date: 20170830
  Serious: Yes (Other)
  Sender: FDA-Public Use
  Company Number: US-BAUSCH-BL-2017-010837

PATIENT
  Age: 83 Year
  Sex: Female
  Weight: 74.91 kg

DRUGS (2)
  1. AMBI FADE NORMAL SKIN [Suspect]
     Active Substance: HYDROQUINONE\OCTINOXATE
     Indication: SKIN DISCOLOURATION
     Dosage: 1 APPLICATION TO THE DARK SPOTS ON THE LEFT SIDE OF HER FACE ONCE OR TWICE DAILY
     Route: 061
     Dates: start: 201703, end: 201704
  2. RAMIPRIL. [Concomitant]
     Active Substance: RAMIPRIL
     Indication: BLOOD PRESSURE MEASUREMENT
     Route: 048

REACTIONS (3)
  - Application site swelling [Not Recovered/Not Resolved]
  - Skin cancer [Unknown]
  - Application site erythema [Not Recovered/Not Resolved]

NARRATIVE: CASE EVENT DATE: 201703
